FAERS Safety Report 11544554 (Version 22)
Quarter: 2019Q4

REPORT INFORMATION
  Report Type: Report from Study
  Country: CA (occurrence: CA)
  Receive Date: 20150924
  Receipt Date: 20191111
  Transmission Date: 20200122
  Serious: Yes (Hospitalization, Other)
  Sender: FDA-Public Use
  Company Number: PHHY2013CA090745

PATIENT
  Age: 45 Year
  Sex: Male

DRUGS (4)
  1. SANDOSTATIN LAR DEPOT [Suspect]
     Active Substance: OCTREOTIDE ACETATE
     Dosage: 20 MG, QMO (EVERY 4 WEEKS)
     Route: 030
     Dates: start: 20140415
  2. SANDOSTATIN LAR DEPOT [Suspect]
     Active Substance: OCTREOTIDE ACETATE
     Dosage: 30 MG, QMO (EVERY 4 WEEKS)
     Route: 030
  3. SANDOSTATIN [Suspect]
     Active Substance: OCTREOTIDE ACETATE
     Indication: PRODUCT USED FOR UNKNOWN INDICATION
     Dosage: 30 UG, TID
     Route: 058
     Dates: start: 201304
  4. SANDOSTATIN LAR DEPOT [Suspect]
     Active Substance: OCTREOTIDE ACETATE
     Indication: PANCREATITIS CHRONIC
     Dosage: 30 MG, QMO (EVERY FOUR WEEKS)
     Route: 030
     Dates: start: 20130812

REACTIONS (18)
  - Nausea [Unknown]
  - Pain [Unknown]
  - Fatigue [Unknown]
  - Needle issue [Unknown]
  - Pancreatic neoplasm [Unknown]
  - Hypersomnia [Unknown]
  - Asthenia [Unknown]
  - Depression [Unknown]
  - Weight decreased [Unknown]
  - Blood pressure increased [Unknown]
  - Ligament sprain [Unknown]
  - Product use in unapproved indication [Unknown]
  - Dyspepsia [Unknown]
  - Malaise [Unknown]
  - Pain in extremity [Unknown]
  - Pancreatitis [Unknown]
  - Phlebitis [Unknown]
  - Pyrexia [Unknown]

NARRATIVE: CASE EVENT DATE: 20150818
